FAERS Safety Report 6544997-2 (Version None)
Quarter: 2010Q1

REPORT INFORMATION
  Report Type: 
  Country: None (occurrence: None)
  Receive Date: 20100121
  Receipt Date: 20100119
  Transmission Date: 20100710
  Serious: Yes (Hospitalization, Disabling)
  Sender: FDA-Public Use
  Company Number: A0840288A

PATIENT
  Age: 70 Year
  Sex: Female

DRUGS (3)
  1. RYTHMOL SR [Suspect]
     Indication: ATRIAL FIBRILLATION
     Dosage: 225MG TWICE PER DAY
     Route: 048
     Dates: start: 20091118
  2. LASIX [Concomitant]
  3. ALDACTONE [Concomitant]

REACTIONS (4)
  - DYSPNOEA [None]
  - OEDEMA [None]
  - RENAL IMPAIRMENT [None]
  - WEIGHT INCREASED [None]
